FAERS Safety Report 13960102 (Version 1)
Quarter: 2017Q3

REPORT INFORMATION
  Report Type: Spontaneous
  Country: DK (occurrence: DK)
  Receive Date: 20170912
  Receipt Date: 20170912
  Transmission Date: 20171128
  Serious: Yes (Other)
  Sender: FDA-Public Use
  Company Number: DK-ROCHE-1986378

PATIENT
  Sex: Female

DRUGS (9)
  1. CISORDINOL [Suspect]
     Active Substance: ZUCLOPENTHIXOL
     Route: 065
  2. CISORDINOL [Suspect]
     Active Substance: ZUCLOPENTHIXOL
     Indication: SCHIZOPHRENIA
     Route: 065
     Dates: start: 2013
  3. CIPRALEX [Suspect]
     Active Substance: ESCITALOPRAM OXALATE
     Indication: PRODUCT USED FOR UNKNOWN INDICATION
     Route: 065
     Dates: end: 201611
  4. CISORDINOL [Suspect]
     Active Substance: ZUCLOPENTHIXOL
     Route: 065
     Dates: start: 201703
  5. CISORDINOL [Suspect]
     Active Substance: ZUCLOPENTHIXOL
     Route: 065
     Dates: start: 2009
  6. CISORDINOL [Suspect]
     Active Substance: ZUCLOPENTHIXOL
     Route: 065
  7. CISORDINOL [Suspect]
     Active Substance: ZUCLOPENTHIXOL
     Route: 065
     Dates: start: 201608
  8. RIVOTRIL [Suspect]
     Active Substance: CLONAZEPAM
     Indication: PRODUCT USED FOR UNKNOWN INDICATION
     Route: 065
  9. CISORDINOL DEPOT [Suspect]
     Active Substance: ZUCLOPENTHIXOL
     Indication: SCHIZOPHRENIA
     Route: 065
     Dates: start: 1990, end: 1993

REACTIONS (25)
  - Dyspnoea [Unknown]
  - Suicidal ideation [Unknown]
  - Withdrawal syndrome [Unknown]
  - Psychotic disorder [Unknown]
  - Feeling abnormal [Recovered/Resolved]
  - Apathy [Unknown]
  - Anger [Unknown]
  - Drug dependence [Unknown]
  - Restless legs syndrome [Unknown]
  - Drug ineffective [Unknown]
  - Stress [Unknown]
  - Depression [Unknown]
  - Dysphagia [Recovered/Resolved]
  - Aggression [Unknown]
  - Somnolence [Unknown]
  - Dyskinesia [Unknown]
  - Suicide attempt [Unknown]
  - Mood altered [Unknown]
  - Malaise [Unknown]
  - Depressed mood [Unknown]
  - Intentional product use issue [Unknown]
  - Fatigue [Unknown]
  - Social avoidant behaviour [Unknown]
  - Maternal exposure during pregnancy [Unknown]
  - Asthenia [Unknown]

NARRATIVE: CASE EVENT DATE: 1993
